FAERS Safety Report 4988389-6 (Version None)
Quarter: 2006Q2

REPORT INFORMATION
  Report Type: 
  Country: None (occurrence: None)
  Receive Date: 20060426
  Receipt Date: 20060407
  Transmission Date: 20061013
  Serious: No
  Sender: FDA-Public Use
  Company Number: 34453

PATIENT

DRUGS (1)
  1. BSS PLUS [Suspect]
     Indication: SURGERY

REACTIONS (4)
  - CHEMICAL EYE INJURY [None]
  - EYE OPERATION COMPLICATION [None]
  - INFLAMMATION [None]
  - KERATITIS [None]
